FAERS Safety Report 8069735-6 (Version None)
Quarter: 2012Q1

REPORT INFORMATION
  Report Type: 
  Country: None (occurrence: None)
  Receive Date: 20120125
  Receipt Date: 20120112
  Transmission Date: 20120608
  Serious: Yes (Hospitalization)
  Sender: FDA-Public Use
  Company Number: DE-UCBSA-044524

PATIENT
  Age: 71 Year
  Sex: Female

DRUGS (26)
  1. NEUPRO [Suspect]
     Route: 062
     Dates: start: 20091001, end: 20091001
  2. LEVOTHYROXINE SODIUM [Suspect]
     Indication: THYROID OPERATION
     Route: 048
     Dates: start: 20100801
  3. AMANTADINE HCL [Concomitant]
     Dates: start: 20101021
  4. SIMVASTATIN [Concomitant]
     Dates: start: 20110512
  5. AMLODIPINE [Concomitant]
     Indication: HYPERTENSION
     Dates: start: 20110917
  6. MADOPAR [Concomitant]
     Dates: start: 20110512
  7. METROPLROLOL [Concomitant]
     Indication: HYPERTENSION
     Route: 048
     Dates: end: 20110917
  8. SPIRONOLACTONE [Concomitant]
     Indication: HYPERTENSION
     Dates: start: 20110917
  9. NEUPRO [Suspect]
     Route: 062
     Dates: start: 20101022, end: 20101027
  10. BISOPROLOL [Concomitant]
     Indication: HYPERTENSION
     Dates: start: 20110917
  11. AZILECT [Concomitant]
     Dates: start: 20110512
  12. ENALAPRIL PLUS [Concomitant]
     Indication: HYPERTENSION
     Dosage: 10/25 MG
     Route: 048
     Dates: start: 20100415
  13. ENALAPRIL PLUS [Concomitant]
     Dosage: 10/25MG
     Dates: start: 20110901
  14. NEUPRO [Suspect]
     Route: 062
     Dates: start: 20091001, end: 20100401
  15. NEUPRO [Suspect]
     Route: 062
     Dates: start: 20090701, end: 20091001
  16. SEROQUEL [Concomitant]
     Indication: HALLUCINATION
     Route: 048
     Dates: start: 20110512, end: 20110917
  17. NEUPRO [Suspect]
     Route: 062
     Dates: start: 20101001, end: 20101001
  18. TORSEMIDE [Suspect]
     Indication: HYPERTENSION
     Route: 048
     Dates: start: 20110512, end: 20110917
  19. LEVOPAR [Concomitant]
     Dates: end: 20100415
  20. LEVOPAR [Concomitant]
     Dosage: FREQUENCY: 1/2-0-0 (100 MG TABLET)
     Dates: start: 20100420, end: 20100430
  21. AMANTADINE HCL [Concomitant]
     Dates: end: 20091001
  22. SIMVASTATIN [Concomitant]
     Indication: BLOOD CHOLESTEROL INCREASED
     Route: 048
  23. NEUPRO [Suspect]
     Indication: PARKINSON'S DISEASE
     Route: 062
     Dates: start: 20101028, end: 20110512
  24. LEVOPAR [Concomitant]
     Dosage: FREQUENCY: 1/2-0-1/2
     Dates: start: 20100416, end: 20100419
  25. MADOPAR LT [Concomitant]
     Dates: start: 20110512
  26. ENALAPRIL MALEATE [Concomitant]
     Indication: HYPERTENSION
     Route: 048

REACTIONS (1)
  - ATRIAL FIBRILLATION [None]
